FAERS Safety Report 13660164 (Version 2)
Quarter: 2017Q3

REPORT INFORMATION
  Report Type: Report from Study
  Country: US (occurrence: US)
  Receive Date: 20170616
  Receipt Date: 20170711
  Transmission Date: 20171127
  Serious: Yes (Other)
  Sender: FDA-Public Use
  Company Number: US-MALLINCKRODT-T201701511

PATIENT
  Age: 43 Year
  Sex: Male

DRUGS (1)
  1. REPOSITORY CORTICOTROPIN INJECTION [Suspect]
     Active Substance: CORTICOTROPIN
     Indication: SARCOIDOSIS
     Dosage: 40 UNITS /0.5 ML, 2 TIMES PER WEEK, MONDAYS AND THURSDAY
     Route: 058
     Dates: start: 20161222

REACTIONS (11)
  - Alopecia [Unknown]
  - Fatigue [Unknown]
  - Peripheral venous disease [Unknown]
  - Rash macular [Unknown]
  - Cardiac disorder [Unknown]
  - Weight increased [Not Recovered/Not Resolved]
  - Ejection fraction decreased [Unknown]
  - Dyspnoea [Not Recovered/Not Resolved]
  - Mood altered [Not Recovered/Not Resolved]
  - Depression [Not Recovered/Not Resolved]
  - Angiopathy [Not Recovered/Not Resolved]

NARRATIVE: CASE EVENT DATE: 20170505
